FAERS Safety Report 5563896-6 (Version None)
Quarter: 2007Q4

REPORT INFORMATION
  Report Type: 
  Country: None (occurrence: None)
  Receive Date: 20071217
  Receipt Date: 20071004
  Transmission Date: 20080405
  Serious: No
  Sender: FDA-Public Use
  Company Number: US-ASTRAZENECA-2007UW23316

PATIENT
  Age: 75 Year
  Sex: Male

DRUGS (7)
  1. CRESTOR [Suspect]
     Dates: start: 20051213
  2. LASIX [Concomitant]
  3. POTASSIUM SUPPLEMENTS [Concomitant]
  4. THYROID TAB [Concomitant]
  5. DIOVAN HCT [Concomitant]
  6. ACTOS [Concomitant]
  7. ZETIA [Concomitant]
     Dates: start: 20061122

REACTIONS (2)
  - HYPOAESTHESIA [None]
  - MYALGIA [None]
